FAERS Safety Report 8887498 (Version 1)
Quarter: 2012Q4

REPORT INFORMATION
  Report Type: Spontaneous
  Country: GB (occurrence: None)
  Receive Date: 20121031
  Receipt Date: 20121031
  Transmission Date: 20130627
  Serious: Yes (Life-Threatening, Hospitalization, Other)
  Sender: FDA-Public Use
  Company Number: GB-023957

PATIENT
  Age: 4 Year
  Sex: Male
  Weight: 17.2 kg

DRUGS (19)
  1. BUSULFAN [Suspect]
     Indication: BONE MARROW FAILURE
     Route: 048
     Dates: start: 20110620, end: 20110623
  2. ALEMTUZUMAB [Suspect]
     Indication: BONE MARROW FAILURE
     Dosage: 5.1 milligram, Intravenous (not otherwise specified)
     Route: 042
     Dates: start: 20110621, end: 20110623
  3. CYCLOPHOSPHAMIDE [Suspect]
     Indication: BONE MARROW FAILURE
     Dosage: 3440 Milligram, Intravenous (not otherwise specified)
     Route: 042
     Dates: start: 20110624, end: 20110627
  4. METHOTREXATE [Suspect]
     Indication: PROPHYLAXIS AGAINST GRAFT VERSUS HOST DISEASE
     Dosage: 14.2 Milligram, Intravenose (not otherwise specified)
     Route: 042
     Dates: start: 20110703, end: 20110706
  5. ACICLOVIR (ACICLOVIR) [Concomitant]
  6. ALLOPURINOL (ALLOPURINOL) [Concomitant]
  7. CICLOSPORIN (CICLOSPORIN) [Concomitant]
  8. ETANERCEPT (ETANERCEPT) [Concomitant]
  9. HYDROCORTISONE (HYDROCORTISONE ACETATE) [Concomitant]
  10. ITRACONAZOLE (ITRACONAZOLE) [Concomitant]
  11. LANSOPRAZOLE (LANSOPRAZOLE) [Concomitant]
  12. ONDANSETRON (ONDANSETRON) [Concomitant]
  13. PARACETAMOL (PARACETAMOL) [Concomitant]
  14. PENTAMIDINE (PENTAMIDINE) [Concomitant]
  15. PETHIDINE (PETHIDINE) [Concomitant]
  16. PHENYTOIN (PHENYTOIN) [Concomitant]
  17. THIOTEPA (THIOTEPA) [Concomitant]
  18. URSODEOXYCHOLIC ACID (URSODEOXYCHOLIC ACID) [Concomitant]
  19. VITAMIN K (VITAMIN K) [Concomitant]

REACTIONS (7)
  - Venoocclusive liver disease [None]
  - Pyrexia [None]
  - Hypoxia [None]
  - Pleural effusion [None]
  - Tachypnoea [None]
  - Haematemesis [None]
  - Weight increased [None]
